FAERS Safety Report 6902513-7 (Version None)
Quarter: 2010Q3

REPORT INFORMATION
  Report Type: 
  Country: None (occurrence: None)
  Receive Date: 20100730
  Receipt Date: 20100719
  Transmission Date: 20110219
  Serious: Yes (Death, Hospitalization, Other)
  Sender: FDA-Public Use
  Company Number: 644538

PATIENT
  Age: 54 Year
  Sex: Male

DRUGS (12)
  1. VINCRISTINE SULPHATE INJECTION, USP (VINCRISTINE SULFATE) [Suspect]
     Indication: PRODUCT USED FOR UNKNOWN INDICATION
     Dosage: INTRAVENOUS (NOT OTHERWISE SPECIFIED)
     Route: 042
  2. DOXORUBICIN HCI FOR INJECTION, USP (DOXORUBICIN HYDROCHLORIDE) [Suspect]
     Indication: PRODUCT USED FOR UNKNOWN INDICATION
     Dosage: INTRAVENOUS (NOT OTHERWISE SPECIFIED)
     Route: 042
  3. CYCLOPHOSPHAMIDE [Suspect]
     Indication: PRODUCT USED FOR UNKNOWN INDICATION
     Dosage: INTRAVENOUS (NOT OTHERWISE SPECIFIED)
     Route: 042
  4. RITUXAN [Suspect]
     Indication: PRODUCT USED FOR UNKNOWN INDICATION
     Dosage: INTRAVENOUS (NOT OTHERWISE SPECIFIED)
     Route: 042
  5. ACYCLOVIR [Concomitant]
  6. AMILORIDE HYDROCHLORIDE [Concomitant]
  7. CIPROFLOXACIN [Concomitant]
  8. FLUCONAZOLE [Concomitant]
  9. (FUROSEMIDE) [Concomitant]
  10. (LACTULOSE) [Concomitant]
  11. NADOLOL [Concomitant]
  12. OMEPRAZOLE [Concomitant]

REACTIONS (8)
  - HERNIAL EVENTRATION [None]
  - HYPOTENSION [None]
  - LOSS OF CONSCIOUSNESS [None]
  - NEUTROPENIA [None]
  - PERITONITIS BACTERIAL [None]
  - RESPIRATORY DISTRESS [None]
  - SEPTIC SHOCK [None]
  - WHITE BLOOD CELL COUNT DECREASED [None]
